FAERS Safety Report 10043692 (Version 3)
Quarter: 2014Q3

REPORT INFORMATION
  Report Type: Report from Study
  Country: JP (occurrence: JP)
  Receive Date: 20140328
  Receipt Date: 20140912
  Transmission Date: 20150326
  Serious: Yes (Death, Hospitalization, Other)
  Sender: FDA-Public Use
  Company Number: PHHY2014JP037298

PATIENT
  Age: 92 Year
  Sex: Male
  Weight: 48 kg

DRUGS (9)
  1. AMARYL [Concomitant]
     Active Substance: GLIMEPIRIDE
     Indication: DIABETES MELLITUS
     Dosage: 1 MG, UNK
     Route: 048
     Dates: end: 20130816
  2. CEFMETAZOLE NA [Concomitant]
     Indication: PROPHYLAXIS
     Dosage: 2 G, UNK
     Route: 042
     Dates: start: 20130818, end: 20130819
  3. FLIVAS [Concomitant]
     Active Substance: NAFTOPIDIL
     Indication: PROSTATE CANCER
     Dosage: 25 MG, UNK
     Route: 048
     Dates: end: 20130816
  4. EXELON [Suspect]
     Active Substance: RIVASTIGMINE TARTRATE
     Dosage: 9 MG, DAILY
     Route: 062
     Dates: start: 20130115, end: 20130211
  5. EXELON [Suspect]
     Active Substance: RIVASTIGMINE TARTRATE
     Dosage: 13.5 MG, DAILY
     Route: 062
     Dates: start: 20130212, end: 20130311
  6. EXELON [Suspect]
     Active Substance: RIVASTIGMINE TARTRATE
     Dosage: 18 MG, DAILY
     Route: 062
     Dates: start: 20130312, end: 20130816
  7. EXELON [Suspect]
     Active Substance: RIVASTIGMINE TARTRATE
     Indication: DEMENTIA ALZHEIMER^S TYPE
     Dosage: 4.5 MG, DAILY
     Route: 062
     Dates: start: 20121218, end: 20130114
  8. JANUVIA [Concomitant]
     Active Substance: SITAGLIPTIN PHOSPHATE
     Indication: DIABETES MELLITUS
     Dosage: 50 MG, UNK
     Dates: end: 20130816
  9. LEVOTHYROXINE [Concomitant]
     Active Substance: LEVOTHYROXINE
     Indication: HYPOTHYROIDISM
     Dosage: 12.5 UG, UNK
     Route: 048

REACTIONS (13)
  - Bundle branch block left [Not Recovered/Not Resolved]
  - Vomiting [Recovered/Resolved]
  - Dyspnoea [Fatal]
  - Red blood cell count decreased [Unknown]
  - Cardiac failure [Fatal]
  - General physical health deterioration [Unknown]
  - Platelet count increased [Unknown]
  - Aspiration [Unknown]
  - Bradycardia [Fatal]
  - Atrioventricular block complete [Fatal]
  - Asthenia [Fatal]
  - Myocardial ischaemia [Fatal]
  - Pneumonia [Fatal]

NARRATIVE: CASE EVENT DATE: 20130618
